FAERS Safety Report 13782834 (Version 1)
Quarter: 2017Q3

REPORT INFORMATION
  Report Type: Spontaneous
  Country: GB (occurrence: GB)
  Receive Date: 20170724
  Receipt Date: 20170724
  Transmission Date: 20171127
  Serious: Yes (Death, Other)
  Sender: FDA-Public Use
  Company Number: GB-PFIZER INC-318368

PATIENT
  Age: 67 Year
  Sex: Female

DRUGS (8)
  1. FOLIC ACID. [Concomitant]
     Active Substance: FOLIC ACID
     Indication: RHEUMATOID ARTHRITIS
     Dosage: 5 MG, FREQ: 1 WEEK; INTERVAL: 1.
     Route: 048
     Dates: start: 19990101, end: 20050101
  2. THYROXINE [Concomitant]
     Active Substance: LEVOTHYROXINE
     Indication: PRODUCT USED FOR UNKNOWN INDICATION
     Dosage: 100 UG, UNK
     Route: 048
     Dates: start: 19840101, end: 20050101
  3. SULFASALAZINE. [Concomitant]
     Active Substance: SULFASALAZINE
     Indication: PRODUCT USED FOR UNKNOWN INDICATION
     Dosage: UNK
     Dates: start: 19920101
  4. METHOTREXATE SODIUM. [Suspect]
     Active Substance: METHOTREXATE SODIUM
     Indication: PRODUCT USED FOR UNKNOWN INDICATION
     Dosage: 15 MG, FREQ: 1 WEEK; INTERVAL: 1.
     Route: 048
     Dates: start: 19970101, end: 20050101
  5. INDOMETHACIN /00003801/ [Concomitant]
     Active Substance: INDOMETHACIN
     Indication: PRODUCT USED FOR UNKNOWN INDICATION
     Dosage: UNK
     Dates: start: 19920101
  6. ARAVA [Suspect]
     Active Substance: LEFLUNOMIDE
     Indication: RHEUMATOID ARTHRITIS
     Dosage: 10 MG, FREQ: 1 WEEK; INTERVAL: 1.
     Route: 048
     Dates: start: 20050228, end: 20050617
  7. BISOPROLOL /01166101/ [Concomitant]
     Indication: PRODUCT USED FOR UNKNOWN INDICATION
     Dosage: 1.25 MG, UNK
     Route: 048
     Dates: start: 20050101, end: 20050101
  8. CLOPIDOGREL [Concomitant]
     Active Substance: CLOPIDOGREL BISULFATE
     Indication: PRODUCT USED FOR UNKNOWN INDICATION
     Dosage: 75 MG, UNK
     Route: 048
     Dates: start: 20050101, end: 20050101

REACTIONS (11)
  - Carbon dioxide decreased [Unknown]
  - Pneumonitis [Fatal]
  - Acute respiratory distress syndrome [Fatal]
  - Hyponatraemia [Unknown]
  - Hypoglycaemia [Unknown]
  - Renal impairment [Unknown]
  - Hypercalcaemia [Unknown]
  - Multiple organ dysfunction syndrome [Fatal]
  - Pneumocystis jirovecii pneumonia [Fatal]
  - Respiratory failure [Fatal]
  - Blood pH increased [Unknown]

NARRATIVE: CASE EVENT DATE: 20050617
